FAERS Safety Report 9745168 (Version 1)
Quarter: 2013Q4

REPORT INFORMATION
  Report Type: Report from Study
  Country: JP (occurrence: JP)
  Receive Date: 20131211
  Receipt Date: 20131211
  Transmission Date: 20140711
  Serious: No
  Sender: FDA-Public Use
  Company Number: JP-JNJFOC-20131201619

PATIENT
  Age: 40 Year
  Sex: Female
  Weight: 65 kg

DRUGS (22)
  1. STELARA [Suspect]
     Indication: PSORIASIS
     Route: 058
     Dates: start: 20130528
  2. STELARA [Suspect]
     Indication: PSORIASIS
     Route: 058
     Dates: start: 20120529, end: 20120529
  3. STELARA [Suspect]
     Indication: PSORIASIS
     Route: 058
     Dates: start: 20130305, end: 20130305
  4. STELARA [Suspect]
     Indication: PSORIASIS
     Route: 058
     Dates: start: 20121211, end: 20121211
  5. STELARA [Suspect]
     Indication: PSORIASIS
     Route: 058
     Dates: start: 20120918, end: 20120918
  6. STELARA [Suspect]
     Indication: PSORIASIS
     Route: 058
     Dates: start: 20120626, end: 20120626
  7. STELARA [Suspect]
     Indication: PSORIASIS
     Route: 058
     Dates: start: 20120918, end: 20120918
  8. STELARA [Suspect]
     Indication: PSORIASIS
     Route: 058
     Dates: start: 20121211, end: 20121211
  9. STELARA [Suspect]
     Indication: PSORIASIS
     Route: 058
     Dates: start: 20130305, end: 20130305
  10. STELARA [Suspect]
     Indication: PSORIASIS
     Route: 058
     Dates: start: 20130528
  11. STELARA [Suspect]
     Indication: PSORIASIS
     Route: 058
     Dates: start: 20120626, end: 20120626
  12. STELARA [Suspect]
     Indication: PSORIASIS
     Route: 058
     Dates: start: 20120529, end: 20120529
  13. ALESION [Concomitant]
     Indication: PSORIASIS
     Route: 048
     Dates: end: 20120828
  14. ATARAX-P [Concomitant]
     Indication: PSORIASIS
     Route: 048
     Dates: end: 20120625
  15. DOVONEX [Concomitant]
     Indication: PSORIASIS
     Route: 061
  16. VOALLA [Concomitant]
     Indication: PSORIASIS
     Route: 061
  17. PROTOPIC [Concomitant]
     Indication: PSORIASIS
     Route: 061
  18. OXAROL [Concomitant]
     Indication: PSORIASIS
     Route: 061
  19. ANTEBATE [Concomitant]
     Indication: PSORIASIS
     Route: 061
  20. OXAROL [Concomitant]
     Indication: PSORIASIS
     Route: 061
  21. FULMETA [Concomitant]
     Indication: PSORIASIS
     Route: 061
  22. ALLELOCK [Concomitant]
     Indication: PSORIASIS
     Route: 048

REACTIONS (1)
  - Hepatic function abnormal [Recovered/Resolved]
